FAERS Safety Report 7068196-3 (Version None)
Quarter: 2010Q4

REPORT INFORMATION
  Report Type: 
  Country: None (occurrence: None)
  Receive Date: 20101028
  Receipt Date: 20101019
  Transmission Date: 20110411
  Serious: Yes (Other)
  Sender: FDA-Public Use
  Company Number: DE-ROCHE-729874

PATIENT
  Sex: Female
  Weight: 63 kg

DRUGS (9)
  1. AVASTIN [Suspect]
     Route: 042
     Dates: start: 20100721
  2. AVASTIN [Suspect]
     Route: 042
  3. XELODA [Suspect]
     Route: 048
     Dates: start: 20100721
  4. XELODA [Suspect]
     Route: 048
  5. PLAVIX [Concomitant]
     Dosage: TAKEN DAILY
     Route: 048
  6. NEBIVOLOL HCL [Concomitant]
     Dosage: TAKEN DAILY
     Route: 048
     Dates: start: 20070101
  7. TOREM [Concomitant]
     Indication: HYPERTENSION
     Dosage: TAKEN DAILY
     Route: 048
     Dates: start: 20070101
  8. SORTIS [Concomitant]
     Route: 048
     Dates: start: 20070101
  9. OLMETEC [Concomitant]
     Indication: HYPERTENSION
     Route: 048
     Dates: start: 20070101

REACTIONS (1)
  - ILEITIS [None]
